FAERS Safety Report 7461083-8 (Version None)
Quarter: 2011Q2

REPORT INFORMATION
  Report Type: 
  Country: None (occurrence: None)
  Receive Date: 20110505
  Receipt Date: 20110503
  Transmission Date: 20111010
  Serious: Yes (Hospitalization)
  Sender: FDA-Public Use
  Company Number: GB-MERCK-1105GBR00004

PATIENT
  Age: 82 Year
  Sex: Male

DRUGS (11)
  1. CALCIUM CARBONATE AND CHOLECALCIFEROL [Concomitant]
     Route: 065
  2. ATENOLOL [Concomitant]
     Route: 065
  3. SIMVASTATIN [Concomitant]
     Route: 048
  4. ACETAMINOPHEN [Concomitant]
     Route: 065
  5. OMEPRAZOLE [Concomitant]
     Route: 065
  6. BENDROFLUMETHIAZIDE [Concomitant]
     Route: 065
     Dates: end: 20110301
  7. FOSAMAX [Suspect]
     Indication: OSTEOPOROSIS
     Route: 048
     Dates: start: 20110331, end: 20110408
  8. ASPIRIN [Concomitant]
     Route: 065
  9. DOCUSATE SODIUM [Concomitant]
     Route: 065
  10. ENALAPRIL MALEATE [Concomitant]
     Route: 048
     Dates: end: 20110301
  11. CODEINE PHOSPHATE [Concomitant]
     Route: 065

REACTIONS (1)
  - RECTAL HAEMORRHAGE [None]
